FAERS Safety Report 7017859 (Version 2)
Quarter: 2014Q3

REPORT INFORMATION
  Report Type: Spontaneous
  Country: US (occurrence: None)
  Receive Date: 20090603
  Receipt Date: 20140922
  Transmission Date: 20150326
  Serious: Yes (Other)
  Sender: FDA-Public Use
  Company Number: 2009S1004414

PATIENT
  Age: 84 Year
  Sex: Female

DRUGS (3)
  1. SODIUM PHOSPHATE, DIBASIC [Suspect]
     Active Substance: SODIUM PHOSPHATE, DIBASIC
     Indication: COLONOSCOPY
     Dosage: PO
     Route: 048
     Dates: start: 200512, end: 200512
  2. COZAAR [Concomitant]
     Active Substance: LOSARTAN POTASSIUM
  3. SYNTHROID [Concomitant]
     Active Substance: LEVOTHYROXINE SODIUM

REACTIONS (13)
  - Renal cyst [None]
  - Fatigue [None]
  - Blood glucose increased [None]
  - Nephrosclerosis [None]
  - Nephrogenic anaemia [None]
  - Renal disorder [None]
  - Renal failure [None]
  - Blood parathyroid hormone increased [None]
  - Aortic arteriosclerosis [None]
  - Dysgeusia [None]
  - Renal impairment [None]
  - Dizziness [None]
  - Renal failure chronic [None]

NARRATIVE: CASE EVENT DATE: 200602
